FAERS Safety Report 8983865 (Version 1)
Quarter: 2012Q4

REPORT INFORMATION
  Report Type: Report from Study
  Country: DE (occurrence: DE)
  Receive Date: 20121224
  Receipt Date: 20121224
  Transmission Date: 20130627
  Serious: Yes (Death)
  Sender: FDA-Public Use
  Company Number: DE-ROCHE-1172632

PATIENT
  Sex: Female
  Weight: 62 kg

DRUGS (1)
  1. CAPECITABINE [Suspect]
     Indication: GASTRIC CANCER
     Route: 048
     Dates: start: 20090422

REACTIONS (3)
  - Diarrhoea [Fatal]
  - Neutropenia [Fatal]
  - Renal failure [Fatal]
